FAERS Safety Report 24248445 (Version 1)
Quarter: 2024Q3

REPORT INFORMATION
  Report Type: Spontaneous
  Country: DE (occurrence: DE)
  Receive Date: 20240826
  Receipt Date: 20240826
  Transmission Date: 20241017
  Serious: No
  Sender: TOLMAR
  Company Number: DE-TOLMAR, INC.-24DE051686

PATIENT

DRUGS (1)
  1. ELIGARD [Suspect]
     Active Substance: LEUPROLIDE ACETATE
     Indication: Product used for unknown indication
     Dosage: 22.5 MILLIGRAM

REACTIONS (3)
  - Product administration error [Unknown]
  - Device leakage [Unknown]
  - Needle issue [Unknown]
